FAERS Safety Report 9139784 (Version 1)
Quarter: 2013Q1

REPORT INFORMATION
  Report Type: Spontaneous
  Country: US (occurrence: US)
  Receive Date: 20130305
  Receipt Date: 20130305
  Transmission Date: 20140127
  Serious: No
  Sender: FDA-Public Use
  Company Number: US-ENDO PHARMACEUTICALS INC.-SPLN20120076

PATIENT
  Sex: Female

DRUGS (6)
  1. SUPPRELIN LA [Suspect]
     Indication: PRODUCT USED FOR UNKNOWN INDICATION
     Route: 058
     Dates: start: 201002, end: 2011
  2. SUPPRELIN LA [Suspect]
     Route: 058
     Dates: start: 20110511
  3. SINGULAIR [Concomitant]
     Route: 065
  4. RHINOCORT [Concomitant]
     Route: 065
  5. MIRALAX [Concomitant]
     Route: 065
  6. MULTIVITAMIN [Concomitant]
     Route: 065

REACTIONS (5)
  - Abdominal pain [Not Recovered/Not Resolved]
  - Urticaria [Unknown]
  - Rash generalised [Unknown]
  - Mood swings [Not Recovered/Not Resolved]
  - Drug effect decreased [Not Recovered/Not Resolved]
